FAERS Safety Report 5582110-9 (Version None)
Quarter: 2008Q2

REPORT INFORMATION
  Report Type: 
  Country: None (occurrence: None)
  Receive Date: 20080104
  Receipt Date: 20071227
  Transmission Date: 20081010
  Serious: Yes (Hospitalization)
  Sender: FDA-Public Use
  Company Number: JP-ABBOTT-06P-087-0343639-00

PATIENT
  Sex: Male

DRUGS (20)
  1. NORVIR [Suspect]
     Indication: HIV INFECTION
     Route: 048
     Dates: start: 20040528
  2. ABACAVIR SULFATE [Suspect]
     Indication: HIV INFECTION
     Route: 048
     Dates: start: 20050401, end: 20050613
  3. ATAZANAVIR CAPSULES [Suspect]
     Indication: HIV INFECTION
     Route: 048
     Dates: start: 20040528
  4. TENOFOVIR [Suspect]
     Indication: HIV INFECTION
     Route: 048
     Dates: start: 20050401, end: 20050419
  5. LAMIVUDINE [Suspect]
     Indication: HIV INFECTION
     Route: 048
     Dates: start: 20050420, end: 20050613
  6. ABACAVIR SULFATE/LAMIVUDINE [Suspect]
     Indication: HIV INFECTION
     Route: 048
     Dates: start: 20050614
  7. CLARITHROMYCIN [Concomitant]
     Indication: OPPORTUNISTIC INFECTION PROPHYLAXIS
     Route: 048
     Dates: start: 20051014
  8. PREDNISOLONE [Concomitant]
     Indication: NEPHROPATHY
     Route: 048
     Dates: start: 20050815, end: 20050911
  9. PREDNISOLONE [Concomitant]
     Route: 048
     Dates: start: 20050912, end: 20051009
  10. PREDNISOLONE [Concomitant]
     Route: 048
     Dates: start: 20051010, end: 20051106
  11. PREDNISOLONE [Concomitant]
     Route: 048
     Dates: start: 20051107, end: 20051204
  12. PREDNISOLONE [Concomitant]
     Route: 048
     Dates: start: 20051205
  13. INSULIN HUMAN [Concomitant]
     Indication: DIABETES MELLITUS
     Route: 042
     Dates: start: 20050401, end: 20050814
  14. INSULIN HUMAN [Concomitant]
     Dates: start: 20060401
  15. INSULIN HUMAN [Concomitant]
  16. LEVOMEPROMAZINE [Concomitant]
     Indication: SCHIZOPHRENIA
     Route: 048
     Dates: start: 20050720
  17. HALOPERIDOL [Concomitant]
     Indication: SCHIZOPHRENIA
     Route: 048
     Dates: start: 20050720, end: 20051031
  18. HALOPERIDOL [Concomitant]
     Route: 048
     Dates: start: 20051101
  19. BIPERIDEN HYDROCHLORIDE TAB [Concomitant]
     Indication: SCHIZOPHRENIA
     Route: 048
     Dates: start: 20050720
  20. LEVOMEPROMAZINE [Concomitant]
     Indication: DRUG USE FOR UNKNOWN INDICATION
     Dates: start: 20050720

REACTIONS (2)
  - DIABETES MELLITUS [None]
  - RENAL IMPAIRMENT [None]
